FAERS Safety Report 9825789 (Version 1)
Quarter: 2014Q1

REPORT INFORMATION
  Report Type: Spontaneous
  Country: US (occurrence: None)
  Receive Date: 20140116
  Receipt Date: 20140116
  Transmission Date: 20141002
  Serious: Yes (Other)
  Sender: FDA-Public Use
  Company Number: None

PATIENT
  Age: 41 Year
  Sex: Male

DRUGS (2)
  1. LEVOFLOXACIN [Suspect]
     Indication: RESPIRATORY TRACT INFECTION
     Route: 048
     Dates: start: 20140106, end: 20140113
  2. GUAIFANESIN AC [Concomitant]

REACTIONS (4)
  - Muscle spasms [None]
  - Gait disturbance [None]
  - Muscle twitching [None]
  - Motor dysfunction [None]
